FAERS Safety Report 7324024-X (Version None)
Quarter: 2011Q1

REPORT INFORMATION
  Report Type: 
  Country: None (occurrence: None)
  Receive Date: 20110217
  Receipt Date: 20110202
  Transmission Date: 20110831
  Serious: Yes (Other)
  Sender: FDA-Public Use
  Company Number: FK201100080

PATIENT
  Age: 14 Year
  Sex: Male

DRUGS (4)
  1. DEXAMETHASONE SODIUM PHOSPHATE [Suspect]
     Indication: ACUTE DISSEMINATED ENCEPHALOMYELITIS
     Dosage: 2, 1.5, 1 MG 1 IN 1 D
     Dates: start: 20080901, end: 20090101
  2. DEXAMETHASONE SODIUM PHOSPHATE [Suspect]
     Indication: ACUTE DISSEMINATED ENCEPHALOMYELITIS
     Dosage: 2, 1.5, 1 MG 1 IN 1 D
     Dates: start: 20090301, end: 20090601
  3. DEXAMETHASONE SODIUM PHOSPHATE [Suspect]
     Indication: ACUTE DISSEMINATED ENCEPHALOMYELITIS
     Dosage: 2, 1.5, 1 MG 1 IN 1 D
     Dates: start: 20090101, end: 20090301
  4. SOLU-MEDROL [Suspect]
     Indication: ACUTE DISSEMINATED ENCEPHALOMYELITIS
     Dosage: X 5
     Dates: start: 20080901, end: 20080901

REACTIONS (5)
  - SKIN STRIAE [None]
  - SKIN ATROPHY [None]
  - DEPRESSION [None]
  - WEIGHT INCREASED [None]
  - SKIN LESION [None]
